FAERS Safety Report 8405781-8 (Version None)
Quarter: 2012Q2

REPORT INFORMATION
  Report Type: 
  Country: None (occurrence: None)
  Receive Date: 20120529
  Receipt Date: 20080905
  Transmission Date: 20120825
  Serious: Yes (Death, Other)
  Sender: FDA-Public Use
  Company Number: 02100-JPN-06-0179

PATIENT
  Age: 76 Year
  Sex: Male

DRUGS (12)
  1. DIMETHICONE/ GUAIAZULENE (DIMETHICONE/ GUAIAZULENE) [Concomitant]
  2. BROMEHEXINE HCL (BROMEHEXINE HCL) [Concomitant]
  3. ACETYL CARNITINE (ACETYL CARNITINE) [Concomitant]
  4. ISOPHANE HUMAN INSULIN (ISOPHANE HUMAN INSULIN) [Concomitant]
  5. BENEXATE BETADEX HCL (BENEXATE BETADEX HCL) [Concomitant]
  6. NADROPARINE CALCIUM (NADROPARINE CALCIUM) [Concomitant]
  7. HUMAN REGULAR INSULIN (HUMAN REGULAR INSULIN) [Concomitant]
  8. PLETAL [Suspect]
     Indication: CEREBROVASCULAR ACCIDENT
     Dosage: 100 MG MILLIGRAM(S), ORAL
     Route: 048
     Dates: start: 20060415, end: 20060416
  9. PANTOPRAZOLE [Concomitant]
  10. ITOPRIDE HCL (ITOPRIDE HCL) [Concomitant]
  11. ACETYL CARNITINE (ACETYL CARNITINE) [Concomitant]
  12. HETASTARCH IN SODIUM CHLORIDE [Concomitant]

REACTIONS (5)
  - GASTROOESOPHAGEAL REFLUX DISEASE [None]
  - ASPIRATION [None]
  - ACUTE RESPIRATORY FAILURE [None]
  - OESOPHAGEAL ULCER HAEMORRHAGE [None]
  - CARDIO-RESPIRATORY ARREST [None]
